FAERS Safety Report 12484942 (Version 1)
Quarter: 2016Q2

REPORT INFORMATION
  Report Type: Spontaneous
  Country: US (occurrence: None)
  Receive Date: 20160620
  Receipt Date: 20160620
  Transmission Date: 20160815
  Serious: Yes (Life-Threatening, Hospitalization, Disabling)
  Sender: FDA-Public Use
  Company Number: None

PATIENT
  Age: 57 Year
  Sex: Male
  Weight: 117.94 kg

DRUGS (2)
  1. BABY ASPIRIN [Concomitant]
     Active Substance: ASPIRIN
  2. LASIX [Suspect]
     Active Substance: FUROSEMIDE
     Indication: HOSPITALISATION
     Route: 042
     Dates: start: 20140103, end: 20140113

REACTIONS (2)
  - Renal disorder [None]
  - Hypersensitivity [None]

NARRATIVE: CASE EVENT DATE: 20140103
